FAERS Safety Report 6095083-X (Version None)
Quarter: 2009Q1

REPORT INFORMATION
  Report Type: 
  Country: None (occurrence: None)
  Receive Date: 20090227
  Receipt Date: 20080115
  Transmission Date: 20090719
  Serious: Yes (Hospitalization, Disabling, Other)
  Sender: FDA-Public Use
  Company Number: A0703359A

PATIENT
  Sex: Male

DRUGS (4)
  1. LAMICTAL [Suspect]
     Indication: BIPOLAR DISORDER
     Route: 048
  2. PROPRANOLOL [Concomitant]
  3. RISPERDAL [Concomitant]
  4. WELLBUTRIN [Concomitant]

REACTIONS (1)
  - STEVENS-JOHNSON SYNDROME [None]
